FAERS Safety Report 26178149 (Version 1)
Quarter: 2025Q4

REPORT INFORMATION
  Report Type: Spontaneous
  Country: EU (occurrence: EU)
  Receive Date: 20251219
  Receipt Date: 20251219
  Transmission Date: 20260118
  Serious: Yes (Hospitalization, Other)
  Sender: BRISTOL-MYERS SQUIBB COMPANY
  Company Number: EU-ROCHE-10000460407

PATIENT
  Age: 74 Year
  Sex: Female

DRUGS (10)
  1. LENALIDOMIDE [Suspect]
     Active Substance: LENALIDOMIDE
     Indication: Diffuse large B-cell lymphoma
  2. OBINUTUZUMAB [Suspect]
     Active Substance: OBINUTUZUMAB
     Indication: Diffuse large B-cell lymphoma
  3. RITUXIMAB [Suspect]
     Active Substance: RITUXIMAB
     Indication: Diffuse large B-cell lymphoma
     Dates: start: 20240125, end: 20240730
  4. POLATUZUMAB VEDOTIN [Suspect]
     Active Substance: POLATUZUMAB VEDOTIN
     Indication: Diffuse large B-cell lymphoma
     Dates: start: 20240125, end: 20240730
  5. CYCLOPHOSPHAMIDE [Suspect]
     Active Substance: CYCLOPHOSPHAMIDE
     Indication: Diffuse large B-cell lymphoma
     Dates: start: 20240125, end: 20240730
  6. DOXORUBICIN [Suspect]
     Active Substance: DOXORUBICIN
     Indication: Diffuse large B-cell lymphoma
     Dates: start: 20240125, end: 20240730
  7. PREDNISONE [Suspect]
     Active Substance: PREDNISONE
     Indication: Diffuse large B-cell lymphoma
     Dates: start: 20240125, end: 20240730
  8. TAFASITAMAB [Suspect]
     Active Substance: TAFASITAMAB
     Indication: Diffuse large B-cell lymphoma
     Dosage: 3RD ADMINISTRATION ON 04/OCT/2024, 4TH ADMINISTRATION ON 11/OCT/2024, 5TH ADMINISTRATION (D22, POSTPONED DUE TO INFECTIOUS COMPLICATIONS) ON 08/NOV/2024
  9. TAFASITAMAB [Suspect]
     Active Substance: TAFASITAMAB
  10. TAFASITAMAB [Suspect]
     Active Substance: TAFASITAMAB

REACTIONS (4)
  - Septic shock [Unknown]
  - Respiratory failure [Unknown]
  - Lymphoma [Unknown]
  - Gastrointestinal obstruction [Unknown]
